FAERS Safety Report 9002692 (Version 1)
Quarter: 2013Q1

REPORT INFORMATION
  Report Type: Spontaneous
  Country: US (occurrence: US)
  Receive Date: 20130107
  Receipt Date: 20130107
  Transmission Date: 20140127
  Serious: No
  Sender: FDA-Public Use
  Company Number: US-GLAXOSMITHKLINE-A0968442A

PATIENT
  Age: 44 Year
  Sex: Female
  Weight: 106.69 kg

DRUGS (18)
  1. BENLYSTA [Suspect]
     Indication: SYSTEMIC LUPUS ERYTHEMATOSUS
     Dosage: 10MGK SEE DOSAGE TEXT
     Route: 042
     Dates: start: 20111103
  2. PLAQUENIL [Concomitant]
  3. METHOTREXATE [Concomitant]
  4. ALLEGRA [Concomitant]
     Dosage: 180MG PER DAY
  5. ALBUTEROL [Concomitant]
  6. FOLIC ACID [Concomitant]
  7. BABY ASPIRIN [Concomitant]
  8. SYNTHROID [Concomitant]
  9. TOPAMAX [Concomitant]
  10. LYRICA [Concomitant]
  11. NEXIUM [Concomitant]
  12. CYMBALTA [Concomitant]
  13. FIORICET [Concomitant]
  14. SYMBICORT [Concomitant]
  15. RESTASIS [Concomitant]
  16. FLONASE [Concomitant]
  17. SINGULAIR [Concomitant]
  18. PREDNISONE [Concomitant]

REACTIONS (5)
  - Menstruation irregular [Not Recovered/Not Resolved]
  - Fungal infection [Unknown]
  - Vaginal discharge [Unknown]
  - Vulvovaginal pruritus [Unknown]
  - Vulvovaginal burning sensation [Unknown]
